FAERS Safety Report 8319275 (Version 4)
Quarter: 2013Q1

REPORT INFORMATION
  Report Type: Other
  Country: FR (occurrence: FR)
  Receive Date: 20120103
  Receipt Date: 20130319
  Transmission Date: 20140127
  Serious: Yes (Hospitalization, Other)
  Sender: FDA-Public Use
  Company Number: FR-ACTELION-A-CH2011-58667

PATIENT
  Age: 57 Year
  Sex: Male
  Weight: 80 kg

DRUGS (6)
  1. TRACLEER [Suspect]
     Indication: PULMONARY ARTERIAL HYPERTENSION
     Dosage: 125 MG, BID
     Route: 048
     Dates: end: 20111118
  2. TELAPREVIR [Suspect]
     Indication: HEPATITIS C
     Dosage: UNK
     Route: 048
     Dates: start: 20111030, end: 20111118
  3. PEGASYS [Concomitant]
  4. ISENTRESS [Concomitant]
  5. TRUVADA [Concomitant]
  6. COPEGUS [Concomitant]

REACTIONS (17)
  - Drug interaction [Unknown]
  - Drug level increased [Unknown]
  - Confusional state [Unknown]
  - Vision blurred [Unknown]
  - Dizziness [Unknown]
  - Hypotension [Unknown]
  - Balance disorder [Unknown]
  - Gait disturbance [Unknown]
  - Liver function test abnormal [Recovered/Resolved]
  - Aspartate aminotransferase increased [Recovered/Resolved]
  - Alanine aminotransferase increased [Recovered/Resolved]
  - Blood bilirubin increased [Recovered/Resolved]
  - Fall [Unknown]
  - Nausea [Unknown]
  - Diarrhoea [Unknown]
  - Hypoalbuminaemia [Recovered/Resolved]
  - Prothrombin time ratio decreased [Recovered/Resolved]
